FAERS Safety Report 6979935-1 (Version None)
Quarter: 2010Q3

REPORT INFORMATION
  Report Type: 
  Country: None (occurrence: None)
  Receive Date: 20100914
  Receipt Date: 20100906
  Transmission Date: 20110219
  Serious: Yes (Other)
  Sender: FDA-Public Use
  Company Number: GR-CUBIST-2010S1001362

PATIENT
  Age: 80 Year

DRUGS (1)
  1. CUBICIN [Suspect]
     Indication: INFECTION
     Route: 042

REACTIONS (2)
  - AUTOIMMUNE DISORDER [None]
  - PULMONARY VASCULITIS [None]
